FAERS Safety Report 17412286 (Version 1)
Quarter: 2020Q1

REPORT INFORMATION
  Report Type: Spontaneous
  Country: US (occurrence: US)
  Receive Date: 20200128
  Receipt Date: 20200128
  Transmission Date: 20200409
  Serious: No
  Sender: FDA-Public Use
  Company Number: None

PATIENT
  Age: 57 Year
  Sex: Male
  Weight: 127 kg

DRUGS (1)
  1. HYDRALAZINE (HYDRALAZINE HCL 25MG TAB) [Suspect]
     Active Substance: HYDRALAZINE HYDROCHLORIDE
     Indication: HYPERTENSION
     Route: 048
     Dates: start: 20190816, end: 20190816

REACTIONS (4)
  - Blood pressure systolic increased [None]
  - Pallor [None]
  - Drug eruption [None]
  - White blood cell count increased [None]

NARRATIVE: CASE EVENT DATE: 20190816
